FAERS Safety Report 9614673 (Version 1)
Quarter: 2013Q4

REPORT INFORMATION
  Report Type: Spontaneous
  Country: US (occurrence: None)
  Receive Date: 20131009
  Receipt Date: 20131009
  Transmission Date: 20140711
  Serious: Yes (Death)
  Sender: FDA-Public Use
  Company Number: None

PATIENT
  Age: 61 Year
  Sex: Male

DRUGS (1)
  1. HUMIRA 40 MG ABBVIE [Suspect]
     Indication: PSORIASIS
     Dates: start: 20120908, end: 20130823

REACTIONS (1)
  - Death [None]
